FAERS Safety Report 4358618-0 (Version None)
Quarter: 2004Q2

REPORT INFORMATION
  Report Type: 
  Country: None (occurrence: None)
  Receive Date: 20040512
  Receipt Date: 20040512
  Transmission Date: 20050107
  Serious: Yes (Hospitalization)
  Sender: FDA-Public Use
  Company Number: None

PATIENT
  Age: 83 Year
  Sex: Female
  Weight: 63 kg

DRUGS (9)
  1. HYDROMORPHONE HCL [Suspect]
     Indication: PAIN
     Dosage: Q4H IVP
     Route: 042
  2. FUROSEMIDE [Concomitant]
  3. NEURONTIN [Concomitant]
  4. HEPARIN [Concomitant]
  5. PREVACID [Concomitant]
  6. ISOSORBIDE [Concomitant]
  7. ZAROXOLYN [Concomitant]
  8. TOPROL-XL [Concomitant]
  9. REMERON [Concomitant]

REACTIONS (1)
  - OXYGEN SATURATION DECREASED [None]
